FAERS Safety Report 8451610 (Version 2)
Quarter: 2012Q4

REPORT INFORMATION
  Report Type: 
  Country: US (occurrence: US)
  Receive Date: 20120309
  Receipt Date: 20120927
  Transmission Date: 20130627
  Serious: No
  Sender: FDA-Public Use
  Company Number: US-AMGEN-USASP2012005203

PATIENT
  Age: 81 Year
  Sex: Female
  Weight: 50 kg

DRUGS (8)
  1. PROLIA [Suspect]
     Indication: OSTEOPOROSIS POSTMENOPAUSAL
     Dosage: 60 mg, q6mo
     Route: 058
     Dates: start: 20120109
  2. VITAMIN D [Concomitant]
     Dosage: 1 IU, qd
     Dates: start: 20071211
  3. VITAMIN D [Concomitant]
  4. TETRACYCLINE [Concomitant]
     Indication: GINGIVAL DISORDER
     Dosage: UNK
  5. TETRACYCLINE [Concomitant]
  6. COLCHICINE [Concomitant]
     Dosage: 0.6 mg, qd
     Route: 048
     Dates: start: 20101026
  7. MVI [Concomitant]
     Dosage: UNK
     Route: 048
     Dates: start: 20101026
  8. OPTIVE [Concomitant]
     Dosage: UNK
     Dates: start: 20100506

REACTIONS (6)
  - Tooth infection [Recovering/Resolving]
  - Gingival infection [Recovering/Resolving]
  - Pain in jaw [Recovering/Resolving]
  - Tooth abscess [Recovering/Resolving]
  - Dental operation [Unknown]
  - Bone loss [Not Recovered/Not Resolved]
